FAERS Safety Report 10519529 (Version 2)
Quarter: 2014Q4

REPORT INFORMATION
  Report Type: Spontaneous
  Country: MA (occurrence: MA)
  Receive Date: 20141015
  Receipt Date: 20141108
  Transmission Date: 20150528
  Serious: No
  Sender: FDA-Public Use
  Company Number: MA-PFIZER INC-2014281572

PATIENT
  Sex: Female

DRUGS (1)
  1. DOSTINEX [Suspect]
     Active Substance: CABERGOLINE
     Dosage: UNK

REACTIONS (1)
  - Acute tonsillitis [Recovered/Resolved]
